FAERS Safety Report 14175695 (Version 1)
Quarter: 2017Q4

REPORT INFORMATION
  Report Type: Report from Study
  Country: AU (occurrence: AU)
  Receive Date: 20171109
  Receipt Date: 20171109
  Transmission Date: 20180321
  Serious: Yes (Hospitalization)
  Sender: FDA-Public Use
  Company Number: AU-PFIZER INC-2017483624

PATIENT

DRUGS (5)
  1. SPIRONOLACTONE. [Suspect]
     Active Substance: SPIRONOLACTONE
     Dosage: UNK
  2. AMITRIPTYLINE [Suspect]
     Active Substance: AMITRIPTYLINE
     Dosage: UNK
  3. PRAZOSIN HCL [Interacting]
     Active Substance: PRAZOSIN HYDROCHLORIDE
     Dosage: UNK
  4. FUROSEMIDE. [Interacting]
     Active Substance: FUROSEMIDE
     Dosage: UNK
  5. PERINDOPRIL [Interacting]
     Active Substance: PERINDOPRIL
     Dosage: UNK

REACTIONS (5)
  - Orthostatic hypotension [Unknown]
  - Acute kidney injury [Unknown]
  - Hyperkalaemia [Unknown]
  - Drug interaction [Unknown]
  - Wrong drug administered [Unknown]
